FAERS Safety Report 5033205-X (Version None)
Quarter: 2006Q2

REPORT INFORMATION
  Report Type: 
  Country: None (occurrence: None)
  Receive Date: 20060620
  Receipt Date: 20060608
  Transmission Date: 20061013
  Serious: Yes (Death)
  Sender: FDA-Public Use
  Company Number: 2006-DE-02951GD

PATIENT
  Sex: Female

DRUGS (2)
  1. PREDNISONE TAB [Suspect]
  2. NONSTEROIDAL ANTI-INFLAMMATORY DRUG (ANTIINFLAMMATORY/ANTIRHEUMATIC NO [Suspect]
     Dosage: HIGH-DOSE

REACTIONS (1)
  - MEDICATION ERROR [None]
